FAERS Safety Report 25344580 (Version 1)
Quarter: 2025Q2

REPORT INFORMATION
  Report Type: Report from Study
  Country: US (occurrence: US)
  Receive Date: 20250522
  Receipt Date: 20250522
  Transmission Date: 20250717
  Serious: Yes (Hospitalization, Other)
  Sender: ABBVIE
  Company Number: US-ABBVIE-5960182

PATIENT
  Age: 33 Year
  Sex: Female
  Weight: 68.945 kg

DRUGS (1)
  1. SKYRIZI [Suspect]
     Active Substance: RISANKIZUMAB-RZAA
     Indication: Psoriasis
     Route: 058
     Dates: start: 202004, end: 202405

REACTIONS (9)
  - Pre-eclampsia [Recovering/Resolving]
  - Maternal exposure during pregnancy [Unknown]
  - Pyrexia [Recovered/Resolved]
  - Premature labour [Not Recovered/Not Resolved]
  - Live birth [Unknown]
  - Vision blurred [Recovered/Resolved]
  - Postpartum haemorrhage [Recovered/Resolved]
  - Amniotic cavity infection [Recovered/Resolved]
  - Headache [Recovered/Resolved]

NARRATIVE: CASE EVENT DATE: 20240227
